FAERS Safety Report 7631022-5 (Version None)
Quarter: 2011Q3

REPORT INFORMATION
  Report Type: 
  Country: None (occurrence: None)
  Receive Date: 20110725
  Receipt Date: 20110714
  Transmission Date: 20111222
  Serious: No
  Sender: FDA-Public Use
  Company Number: US-BIOGENIDEC-2011BI026345

PATIENT
  Age: 45 Year
  Sex: Female

DRUGS (2)
  1. AVONEX [Suspect]
     Indication: MULTIPLE SCLEROSIS
     Route: 030
     Dates: start: 20110617
  2. COZAAR [Concomitant]
     Indication: HYPERTENSION

REACTIONS (6)
  - VISION BLURRED [None]
  - CLUSTER HEADACHE [None]
  - CHEST DISCOMFORT [None]
  - MIGRAINE [None]
  - MALAISE [None]
  - HYPERTENSION [None]
